FAERS Safety Report 7921063-2 (Version None)
Quarter: 2011Q4

REPORT INFORMATION
  Report Type: 
  Country: None (occurrence: None)
  Receive Date: 20111117
  Receipt Date: 20111114
  Transmission Date: 20120403
  Serious: Yes (Hospitalization, Other)
  Sender: FDA-Public Use
  Company Number: US-MERCK-1111USA01980

PATIENT
  Sex: Female

DRUGS (2)
  1. FOSAMAX [Suspect]
     Route: 048
     Dates: start: 19950101, end: 20050101
  2. BONIVA [Suspect]
     Route: 065
     Dates: start: 20060101, end: 20100101

REACTIONS (3)
  - TOOTH DISORDER [None]
  - OSTEONECROSIS OF JAW [None]
  - ADVERSE EVENT [None]
